FAERS Safety Report 9504877 (Version 1)
Quarter: 2013Q3

REPORT INFORMATION
  Report Type: Spontaneous
  Country: TW (occurrence: TW)
  Receive Date: 20130906
  Receipt Date: 20130906
  Transmission Date: 20140515
  Serious: No
  Sender: FDA-Public Use
  Company Number: TW-ROCHE-1271283

PATIENT
  Age: 30 Year
  Sex: Female

DRUGS (1)
  1. ROACCUTANE [Suspect]
     Indication: ACNE
     Route: 048
     Dates: start: 20130222, end: 20130323

REACTIONS (2)
  - Pregnancy [Unknown]
  - No adverse event [Unknown]
